FAERS Safety Report 7752519-3 (Version None)
Quarter: 2011Q3

REPORT INFORMATION
  Report Type: 
  Country: None (occurrence: None)
  Receive Date: 20110913
  Receipt Date: 20110830
  Transmission Date: 20111222
  Serious: Yes (Disabling)
  Sender: FDA-Public Use
  Company Number: AUR-APL-2011-04858

PATIENT
  Age: 68 Year
  Sex: Male
  Weight: 86 kg

DRUGS (6)
  1. SIMVASTATIN [Suspect]
     Dosage: ORAL
     Route: 048
     Dates: start: 20110428, end: 20110101
  2. BISOPROLOL FUMARATE [Concomitant]
  3. DIHYDROCODEINE BITARTRATE INJ [Concomitant]
  4. RAMIPRIL [Concomitant]
  5. OMEPRAZOLE (OMERAZOLE) [Concomitant]
  6. ACETAMINOPHEN [Concomitant]

REACTIONS (3)
  - MUSCULOSKELETAL STIFFNESS [None]
  - MUSCLE SPASMS [None]
  - MYALGIA [None]
